FAERS Safety Report 23104918 (Version 15)
Quarter: 2024Q4

REPORT INFORMATION
  Report Type: Report from Study
  Country: MX (occurrence: MX)
  Receive Date: 20231025
  Receipt Date: 20241204
  Transmission Date: 20250114
  Serious: Yes (Other)
  Sender: NOVARTIS
  Company Number: MX-002147023-NVSC2023MX145847

PATIENT
  Sex: Female
  Weight: 79 kg

DRUGS (3)
  1. TASIGNA [Suspect]
     Active Substance: NILOTINIB
     Indication: Chronic myeloid leukaemia
     Dosage: UNK
     Route: 048
  2. TASIGNA [Suspect]
     Active Substance: NILOTINIB
     Dosage: 2 DOSAGE FORM, Q12H
     Route: 048
  3. TASIGNA [Suspect]
     Active Substance: NILOTINIB
     Dosage: 800 MG, QD (4 X 200 MG)
     Route: 048

REACTIONS (36)
  - Epilepsy [Unknown]
  - Seizure [Unknown]
  - Foot deformity [Unknown]
  - Diarrhoea [Recovering/Resolving]
  - Abdominal pain upper [Recovering/Resolving]
  - Weight increased [Unknown]
  - Somnolence [Unknown]
  - Abdominal discomfort [Unknown]
  - Libido decreased [Unknown]
  - Feeling of despair [Not Recovered/Not Resolved]
  - Inadequate lubrication [Unknown]
  - Dysstasia [Recovered/Resolved]
  - Crying [Not Recovered/Not Resolved]
  - Grip strength decreased [Unknown]
  - Emotional disorder [Unknown]
  - Pain [Unknown]
  - Negative thoughts [Not Recovered/Not Resolved]
  - Expired product administered [Unknown]
  - Bone pain [Unknown]
  - Insomnia [Unknown]
  - Pain in extremity [Not Recovered/Not Resolved]
  - Depressed mood [Unknown]
  - Malaise [Unknown]
  - Fatigue [Unknown]
  - Depression [Unknown]
  - Anxiety [Unknown]
  - Tremor [Unknown]
  - Paraesthesia [Unknown]
  - Product dose omission in error [Unknown]
  - Inflammation [Not Recovered/Not Resolved]
  - Peripheral swelling [Unknown]
  - Discharge [Not Recovered/Not Resolved]
  - Wound complication [Not Recovered/Not Resolved]
  - Fall [Not Recovered/Not Resolved]
  - Weight decreased [Not Recovered/Not Resolved]
  - Nausea [Unknown]

NARRATIVE: CASE EVENT DATE: 20220101
